FAERS Safety Report 14549378 (Version 3)
Quarter: 2018Q1

REPORT INFORMATION
  Report Type: Spontaneous
  Country: JP (occurrence: JP)
  Receive Date: 20180219
  Receipt Date: 20180330
  Transmission Date: 20180509
  Serious: Yes (Death, Life-Threatening, Other)
  Sender: FDA-Public Use
  Company Number: JP-FLAMINGO-001153

PATIENT
  Age: 66 Year
  Sex: Female
  Weight: 40.5 kg

DRUGS (6)
  1. METRONIDAZOLE. [Suspect]
     Active Substance: METRONIDAZOLE
     Indication: HELICOBACTER INFECTION
  2. CEFTRIAXONE. [Concomitant]
     Active Substance: CEFTRIAXONE
     Indication: HELICOBACTER INFECTION
  3. PIPERACILLIN SODIUM/TAZOBACTAM SODIUM [Concomitant]
     Indication: PELVIC ABSCESS
  4. LEVOFOLINATE [Concomitant]
     Active Substance: LEVOLEUCOVORIN CALCIUM
     Indication: RECTAL CANCER STAGE IV
     Dosage: 200 MG / M2
  5. FLUOROURACIL. [Suspect]
     Active Substance: FLUOROURACIL
     Indication: RECTAL CANCER STAGE IV
     Dosage: 400 MG/M2) 3,200 MG CONTINUOUS INFUSION OVER 46 HOURS (2,400 MG/M2)
     Route: 042
  6. OXALIPLATIN. [Suspect]
     Active Substance: OXALIPLATIN
     Indication: RECTAL CANCER STAGE IV
     Dosage: 85 MG / M2

REACTIONS (2)
  - Coma [Unknown]
  - Leukoencephalopathy [Fatal]
